FAERS Safety Report 24357518 (Version 1)
Quarter: 2024Q3

REPORT INFORMATION
  Report Type: Spontaneous
  Country: US (occurrence: US)
  Receive Date: 20240924
  Receipt Date: 20240924
  Transmission Date: 20241017
  Serious: No
  Sender: TEVA
  Company Number: US-TEVA-VS-3240414

PATIENT
  Age: 79 Year
  Sex: Female
  Weight: 44.444 kg

DRUGS (1)
  1. AUSTEDO [Suspect]
     Active Substance: DEUTETRABENAZINE
     Indication: Huntington^s disease
     Dosage: 9MG + 6MG, ONE 9 MG TABLET AND ONE 6 MG TABLET TWICE DAILY
     Route: 065

REACTIONS (2)
  - Musculoskeletal stiffness [Unknown]
  - Feeling abnormal [Unknown]
